FAERS Safety Report 5216065-3 (Version None)
Quarter: 2007Q1

REPORT INFORMATION
  Report Type: 
  Country: None (occurrence: None)
  Receive Date: 20070123
  Receipt Date: 20070111
  Transmission Date: 20070707
  Serious: Yes (Hospitalization, Other)
  Sender: FDA-Public Use
  Company Number: US-PFIZER INC-2007002939

PATIENT
  Age: 64 Year
  Sex: Male

DRUGS (1)
  1. SU-011,248 [Suspect]
     Indication: GASTRIC CANCER
     Route: 065
     Dates: start: 20060808, end: 20061201

REACTIONS (3)
  - ESCHERICHIA INFECTION [None]
  - LIVER ABSCESS [None]
  - SYNCOPE [None]
